FAERS Safety Report 9744453 (Version 1)
Quarter: 2013Q4

REPORT INFORMATION
  Report Type: Spontaneous
  Country: GB (occurrence: GB)
  Receive Date: 20131210
  Receipt Date: 20131210
  Transmission Date: 20140711
  Serious: Yes (Other)
  Sender: FDA-Public Use
  Company Number: GB-ASTRAZENECA-2013SE88357

PATIENT
  Sex: Male

DRUGS (2)
  1. BRILIQUE [Suspect]
     Indication: ACUTE MYOCARDIAL INFARCTION
     Route: 048
  2. ASPIRIN [Suspect]
     Route: 065

REACTIONS (1)
  - Transient ischaemic attack [Unknown]
